FAERS Safety Report 11442063 (Version 10)
Quarter: 2017Q1

REPORT INFORMATION
  Report Type: Spontaneous
  Country: US (occurrence: US)
  Receive Date: 20150901
  Receipt Date: 20170206
  Transmission Date: 20170428
  Serious: Yes (Hospitalization)
  Sender: FDA-Public Use
  Company Number: US-PFIZER INC-2015281114

PATIENT
  Age: 52 Year
  Sex: Female

DRUGS (5)
  1. IBRANCE [Suspect]
     Active Substance: PALBOCICLIB
     Indication: BREAST CANCER METASTATIC
     Dosage: 125 MG, CYCLIC (PER DAY FOR 21 DAYS; THEN 7 DAYS OFF)
     Dates: start: 201503, end: 201611
  2. LETROZOLE. [Suspect]
     Active Substance: LETROZOLE
     Indication: BREAST CANCER METASTATIC
     Dosage: UNK
  3. ARIMIDEX [Concomitant]
     Active Substance: ANASTROZOLE
     Dosage: UNK
  4. VITAMIN D [Concomitant]
     Active Substance: CHOLECALCIFEROL
     Dosage: UNK
  5. VITAMIN E [Concomitant]
     Active Substance: .ALPHA.-TOCOPHEROL
     Dosage: UNK

REACTIONS (14)
  - Hot flush [Unknown]
  - Nausea [Recovered/Resolved]
  - Retching [Unknown]
  - Influenza [Unknown]
  - Flushing [Unknown]
  - Cough [Unknown]
  - Upper-airway cough syndrome [Unknown]
  - Neoplasm progression [Unknown]
  - Vomiting [Recovered/Resolved]
  - Malaise [Unknown]
  - Sepsis [Unknown]
  - Epistaxis [Unknown]
  - Herpes zoster [Recovered/Resolved]
  - Fatigue [Unknown]

NARRATIVE: CASE EVENT DATE: 2015
